FAERS Safety Report 16894454 (Version 6)
Quarter: 2020Q3

REPORT INFORMATION
  Report Type: Spontaneous
  Country: US (occurrence: US)
  Receive Date: 20191008
  Receipt Date: 20200722
  Transmission Date: 20201102
  Serious: No
  Sender: FDA-Public Use
  Company Number: US-PFIZER INC-2019429973

PATIENT
  Age: 66 Year
  Sex: Female
  Weight: 57.61 kg

DRUGS (3)
  1. SUTENT [Suspect]
     Active Substance: SUNITINIB MALATE
     Indication: RENAL CELL CARCINOMA
     Dosage: 12.5, 1X/DAY (12.5)
     Dates: start: 2005, end: 2010
  2. SUTENT [Suspect]
     Active Substance: SUNITINIB MALATE
     Dosage: 25 MG, CYCLIC (TAKE ORALLY DAILY ON DAYS 1?28 WITH OR WITHOUT FOOD 4 WEEKS)
     Route: 048
  3. SUTENT [Suspect]
     Active Substance: SUNITINIB MALATE
     Dosage: 12.5 MG, CYCLIC
     Route: 048

REACTIONS (4)
  - Oral pain [Not Recovered/Not Resolved]
  - Illness [Recovered/Resolved]
  - Skin disorder [Not Recovered/Not Resolved]
  - Mouth ulceration [Unknown]

NARRATIVE: CASE EVENT DATE: 2005
